FAERS Safety Report 6835716-0 (Version None)
Quarter: 2010Q3

REPORT INFORMATION
  Report Type: 
  Country: None (occurrence: None)
  Receive Date: 20100713
  Receipt Date: 20100706
  Transmission Date: 20110219
  Serious: Yes (Other)
  Sender: FDA-Public Use
  Company Number: US-PFIZER INC-2010084903

PATIENT
  Sex: Female

DRUGS (2)
  1. DEPO-PROVERA [Suspect]
     Indication: OFF LABEL USE
     Dosage: 150 MG, EVERY THREE MONTHS
     Dates: start: 19980101, end: 20090701
  2. DEPO-PROVERA [Suspect]
     Indication: WEIGHT INCREASED

REACTIONS (8)
  - BONE DENSITY DECREASED [None]
  - CONDITION AGGRAVATED [None]
  - MENOPAUSE [None]
  - MOOD SWINGS [None]
  - OSTEOARTHRITIS [None]
  - PERSONALITY CHANGE [None]
  - TEMPOROMANDIBULAR JOINT SYNDROME [None]
  - UTERINE DISORDER [None]
